FAERS Safety Report 19355907 (Version 1)
Quarter: 2021Q2

REPORT INFORMATION
  Report Type: Spontaneous
  Country: US (occurrence: US)
  Receive Date: 20210602
  Receipt Date: 20210602
  Transmission Date: 20210717
  Serious: Yes (Death)
  Sender: FDA-Public Use
  Company Number: None

PATIENT
  Sex: Female
  Weight: 49.5 kg

DRUGS (22)
  1. BISOPROLOL [Concomitant]
     Active Substance: BISOPROLOL
  2. VENCLEXTA [Concomitant]
     Active Substance: VENETOCLAX
  3. LEVOTHYROXINE. [Concomitant]
     Active Substance: LEVOTHYROXINE
  4. ANASTRAZOLE [Concomitant]
     Active Substance: ANASTROZOLE
  5. BUSPRIONE [Concomitant]
  6. PREDNISONE. [Concomitant]
     Active Substance: PREDNISONE
  7. MULTIVITAMIN [Concomitant]
     Active Substance: VITAMINS
  8. MIDODRINE [Concomitant]
     Active Substance: MIDODRINE
  9. MEDICAL MARIJUANA [Concomitant]
     Active Substance: CANNABIS SATIVA SUBSP. INDICA TOP
  10. CYTARABINE. [Suspect]
     Active Substance: CYTARABINE
     Indication: ACUTE MYELOID LEUKAEMIA
     Route: 058
     Dates: start: 20210421
  11. LORAZEPAM. [Concomitant]
     Active Substance: LORAZEPAM
  12. ALLOPURINOL. [Concomitant]
     Active Substance: ALLOPURINOL
  13. POTASSIUM CHLORIDE. [Concomitant]
     Active Substance: POTASSIUM CHLORIDE
  14. BIOTIN [Concomitant]
     Active Substance: BIOTIN
  15. VITAMIN B12 [Concomitant]
     Active Substance: CYANOCOBALAMIN
  16. ACYCLOVIR. [Concomitant]
     Active Substance: ACYCLOVIR
  17. ONDANSETRON [Concomitant]
     Active Substance: ONDANSETRON
  18. VITAMIN D3 [Concomitant]
     Active Substance: CHOLECALCIFEROL
  19. CALCIUM [Concomitant]
     Active Substance: CALCIUM
  20. PROCHLORPERAZINE. [Concomitant]
     Active Substance: PROCHLORPERAZINE
  21. TRAMADOL. [Concomitant]
     Active Substance: TRAMADOL
  22. VITAMIN C [Concomitant]
     Active Substance: ASCORBIC ACID

REACTIONS (1)
  - Death [None]
